FAERS Safety Report 5214533-1 (Version None)
Quarter: 2007Q1

REPORT INFORMATION
  Report Type: 
  Country: None (occurrence: None)
  Receive Date: 20070119
  Receipt Date: 20070119
  Transmission Date: 20070707
  Serious: Yes (Hospitalization)
  Sender: FDA-Public Use
  Company Number: None

PATIENT
  Sex: Male
  Weight: 81 kg

DRUGS (3)
  1. FLUOROURACIL [Suspect]
     Dosage: 5550 MG
     Dates: end: 20060424
  2. LEUCOVORIN CALCIUM [Suspect]
     Dosage: 400 MG
     Dates: end: 20060424
  3. ELOXATIN [Suspect]
     Dosage: 165 MG
     Dates: end: 20060424

REACTIONS (5)
  - ABDOMINAL DISTENSION [None]
  - CARDIAC ARREST [None]
  - CHEST PAIN [None]
  - FALL [None]
  - RESPIRATION ABNORMAL [None]
